FAERS Safety Report 9442808 (Version 1)
Quarter: 2013Q3

REPORT INFORMATION
  Report Type: Report from Study
  Country: US (occurrence: US)
  Receive Date: 20130806
  Receipt Date: 20130806
  Transmission Date: 20140515
  Serious: No
  Sender: FDA-Public Use
  Company Number: US-ABBOTT-12P-163-1016852-00

PATIENT
  Sex: Male
  Weight: 98.97 kg

DRUGS (1)
  1. DEPAKOTE ER [Suspect]
     Indication: MANIA
     Dates: start: 199509

REACTIONS (1)
  - Weight increased [Recovered/Resolved]
